FAERS Safety Report 8246737-8 (Version None)
Quarter: 2012Q1

REPORT INFORMATION
  Report Type: 
  Country: None (occurrence: None)
  Receive Date: 20120330
  Receipt Date: 20120323
  Transmission Date: 20120608
  Serious: Yes (Other)
  Sender: FDA-Public Use
  Company Number: US-PFIZER INC-2012030167

PATIENT
  Sex: Female
  Weight: 63.492 kg

DRUGS (2)
  1. LUMIGAN [Suspect]
     Indication: GLAUCOMA
     Dosage: UNK
  2. LATANOPROST [Suspect]
     Indication: GLAUCOMA
     Dosage: 1 DROP IN EACH EYE DAILY AT NIGHT
     Route: 047
     Dates: start: 20110701, end: 20110901

REACTIONS (3)
  - EYE DISORDER [None]
  - DRUG INEFFECTIVE [None]
  - PROCEDURAL COMPLICATION [None]
